FAERS Safety Report 6973950-X (Version None)
Quarter: 2010Q3

REPORT INFORMATION
  Report Type: 
  Country: None (occurrence: None)
  Receive Date: 20100909
  Receipt Date: 20100827
  Transmission Date: 20110219
  Serious: Yes (Other)
  Sender: FDA-Public Use
  Company Number: US-ENDO PHARMACEUTICALS INC.-OPER20100156

PATIENT
  Sex: Female
  Weight: 99.88 kg

DRUGS (3)
  1. OPANA ER [Suspect]
     Indication: ARTHRALGIA
     Dosage: 20 MG
     Route: 048
  2. OPANA ER [Suspect]
     Dosage: 40 MG
     Route: 048
     Dates: start: 20100813, end: 20100813
  3. PERCOCET [Suspect]
     Dosage: ONE
     Route: 048
     Dates: start: 20100813, end: 20100813

REACTIONS (7)
  - BLOOD PRESSURE SYSTOLIC INCREASED [None]
  - CHEST PAIN [None]
  - DIZZINESS [None]
  - DYSPNOEA [None]
  - MEDICATION ERROR [None]
  - PALPITATIONS [None]
  - TACHYCARDIA [None]
